FAERS Safety Report 21491470 (Version 1)
Quarter: 2022Q4

REPORT INFORMATION
  Report Type: Spontaneous
  Country: US (occurrence: US)
  Receive Date: 20221021
  Receipt Date: 20221021
  Transmission Date: 20230113
  Serious: Yes (Other)
  Sender: FDA-Public Use
  Company Number: US-SUN PHARMACEUTICAL INDUSTRIES LTD-2022R1-360004

PATIENT
  Age: 39 Year
  Sex: Male

DRUGS (2)
  1. GEMCITABINE [Suspect]
     Active Substance: GEMCITABINE
     Indication: NUT midline carcinoma
     Dosage: 1500 MILLIGRAM/SQ. METER DAY 1, 15 OF 28-DAY CYCLE
     Route: 065
  2. PACLITAXEL [Suspect]
     Active Substance: PACLITAXEL
     Indication: NUT midline carcinoma
     Dosage: 175 MILLIGRAM/SQ. METER DAY 1, 15 OF 28-DAY CYCLE
     Route: 065

REACTIONS (1)
  - Disease progression [Unknown]
